FAERS Safety Report 6900159-8 (Version None)
Quarter: 2010Q3

REPORT INFORMATION
  Report Type: 
  Country: None (occurrence: None)
  Receive Date: 20100708
  Receipt Date: 20100406
  Transmission Date: 20110219
  Serious: Yes (Other)
  Sender: FDA-Public Use
  Company Number: 2010044215

PATIENT
  Age: 47 Year
  Sex: Female
  Weight: 53.5 kg

DRUGS (5)
  1. CHANTIX [Suspect]
     Indication: SMOKING CESSATION THERAPY
     Dosage: 0.5 MG, 1X/DAY, ORAL
     Route: 048
     Dates: start: 20090101, end: 20090101
  2. PERCOCET [Suspect]
  3. KLONOPIN [Concomitant]
  4. TRAZODONE HCL [Concomitant]
  5. ATIVAN [Concomitant]

REACTIONS (3)
  - INTENTIONAL OVERDOSE [None]
  - SUICIDAL IDEATION [None]
  - SUICIDE ATTEMPT [None]
